FAERS Safety Report 7278354-0 (Version None)
Quarter: 2011Q1

REPORT INFORMATION
  Report Type: 
  Country: None (occurrence: None)
  Receive Date: 20110207
  Receipt Date: 20110203
  Transmission Date: 20110831
  Serious: Yes (Death, Other)
  Sender: FDA-Public Use
  Company Number: DE-GENZYME-FLUD-1000691

PATIENT

DRUGS (13)
  1. MELPHALAN [Suspect]
     Dosage: 110 MG/M2, ONCE ON DAY -4
     Route: 065
     Dates: start: 20060801
  2. FLUDARA [Suspect]
     Indication: STEM CELL TRANSPLANT
     Dosage: 30 MG/M2, QDX5 ON DAYS -9 TO -5
     Route: 065
  3. METHOTREXATE [Concomitant]
     Indication: PROPHYLAXIS AGAINST GRAFT VERSUS HOST DISEASE
  4. MELPHALAN [Suspect]
     Indication: BONE MARROW CONDITIONING REGIMEN
     Dosage: 110 MG/M2, ONCE ON DAY -4
     Route: 065
     Dates: start: 20050701, end: 20060801
  5. CYCLOSPORINE [Concomitant]
     Indication: PROPHYLAXIS AGAINST GRAFT VERSUS HOST DISEASE
  6. CARMUSTIN BCNU [Suspect]
     Indication: STEM CELL TRANSPLANT
     Dosage: 150 MG/M2, QD X 2 ON DAYS -7 AND -6
     Route: 065
  7. CARMUSTIN BCNU [Suspect]
     Dosage: 150 MG/M2, QD X 2 ON DAYS -7 AND -6
     Route: 065
     Dates: start: 20060801
  8. MYCOPHENOLATE MOFETIL [Concomitant]
     Indication: PROPHYLAXIS AGAINST GRAFT VERSUS HOST DISEASE
  9. FLUDARA [Suspect]
     Indication: BONE MARROW CONDITIONING REGIMEN
     Dosage: 30 MG/M2, QD X 4 FROM DAYS -8 TO -5
     Route: 065
     Dates: start: 20050701, end: 20060801
  10. FLUDARA [Suspect]
     Dosage: 30 MG/M2, QD X 4 ON DAYS -7 TO -4
     Route: 065
     Dates: start: 20060801
  11. MELPHALAN [Suspect]
     Indication: STEM CELL TRANSPLANT
     Dosage: 110 MG/M2, ONCE ON DAY -4
     Route: 065
  12. THYMOGLOBULIN [Suspect]
     Indication: PROPHYLAXIS AGAINST GRAFT VERSUS HOST DISEASE
     Route: 042
  13. CARMUSTIN BCNU [Suspect]
     Indication: BONE MARROW CONDITIONING REGIMEN
     Dosage: 150 MG/M2, QD X 2 ON DAYS -7 AND -6
     Route: 065
     Dates: start: 20050701, end: 20060801

REACTIONS (5)
  - ACUTE GRAFT VERSUS HOST DISEASE [None]
  - CHRONIC GRAFT VERSUS HOST DISEASE [None]
  - DISEASE PROGRESSION [None]
  - CARDIOVASCULAR DISORDER [None]
  - INFECTION [None]
